FAERS Safety Report 6606726-3 (Version None)
Quarter: 2010Q1

REPORT INFORMATION
  Report Type: 
  Country: None (occurrence: None)
  Receive Date: 20100226
  Receipt Date: 20090326
  Transmission Date: 20100710
  Serious: No
  Sender: FDA-Public Use
  Company Number: US-ALLERGAN-0901265US

PATIENT
  Age: 43 Year
  Sex: Female
  Weight: 54.422 kg

DRUGS (9)
  1. BOTOX [Suspect]
     Indication: BACK PAIN
     Dosage: 300 UNITS, SINGLE
     Route: 030
     Dates: start: 20090122, end: 20090122
  2. ROBAXIN [Concomitant]
     Dates: end: 20090128
  3. CLONAZEPAM [Concomitant]
     Dosage: UNK, UNKNOWN
     Route: 065
  4. EFFEXOR [Concomitant]
     Dosage: UNK, UNKNOWN
     Route: 065
  5. PROVENTIL [Concomitant]
     Indication: ASTHMA
     Dosage: UNK, UNKNOWN
     Route: 065
  6. QVAR 40 [Concomitant]
     Indication: ASTHMA
     Dosage: UNK, UNKNOWN
     Route: 065
  7. NAPROXEN [Concomitant]
     Indication: PAIN
     Dosage: 500 MG, BID PRN
  8. TRAZODONE HCL [Concomitant]
     Indication: SLEEP DISORDER
     Dosage: 50 MG, BID PRN
     Route: 048
  9. VICODIN [Concomitant]
     Indication: PAIN
     Dosage: 5/500 BID, PRN

REACTIONS (3)
  - CHILLS [None]
  - HEADACHE [None]
  - TREMOR [None]
